FAERS Safety Report 5795456-6 (Version None)
Quarter: 2008Q2

REPORT INFORMATION
  Report Type: 
  Country: None (occurrence: None)
  Receive Date: 20080601
  Receipt Date: 20080202
  Transmission Date: 20081010
  Serious: No
  Sender: FDA-Public Use
  Company Number: US200802000491

PATIENT
  Age: 53 Year
  Sex: Female
  Weight: 83.9 kg

DRUGS (5)
  1. BYETTA [Suspect]
     Indication: OBESITY
     Dosage: 5 UG, 2/D, SUBCUTANEOUS ; 10 UG, 2/D, SUBCUTANEOUS ; 5 UG, 2/D, SUBCUTANEOUS
     Route: 058
     Dates: start: 20070401, end: 20070101
  2. BYETTA [Suspect]
     Indication: OBESITY
     Dosage: 5 UG, 2/D, SUBCUTANEOUS ; 10 UG, 2/D, SUBCUTANEOUS ; 5 UG, 2/D, SUBCUTANEOUS
     Route: 058
     Dates: start: 20061001, end: 20070401
  3. BYETTA [Suspect]
     Indication: OBESITY
     Dosage: 5 UG, 2/D, SUBCUTANEOUS ; 10 UG, 2/D, SUBCUTANEOUS ; 5 UG, 2/D, SUBCUTANEOUS
     Route: 058
     Dates: start: 20070101
  4. GLUCOPHAGE [Concomitant]
  5. PREDNISONE [Concomitant]

REACTIONS (10)
  - ABDOMINAL DISTENSION [None]
  - BLOOD GLUCOSE DECREASED [None]
  - BLOOD GLUCOSE INCREASED [None]
  - DIZZINESS [None]
  - FEELING ABNORMAL [None]
  - GLYCOSYLATED HAEMOGLOBIN INCREASED [None]
  - NEPHROLITHIASIS [None]
  - NERVOUSNESS [None]
  - VISION BLURRED [None]
  - WEIGHT FLUCTUATION [None]
